FAERS Safety Report 20193765 (Version 1)
Quarter: 2021Q4

REPORT INFORMATION
  Report Type: Spontaneous
  Country: US (occurrence: None)
  Receive Date: 20211216
  Receipt Date: 20211216
  Transmission Date: 20220303
  Serious: Yes (Hospitalization)
  Sender: FDA-Public Use
  Company Number: None

PATIENT
  Age: 9 Year
  Sex: Male
  Weight: 9.8 kg

DRUGS (5)
  1. CYTARABINE [Suspect]
     Active Substance: CYTARABINE
     Dates: end: 20131024
  2. DEXAMETHASONE [Suspect]
     Active Substance: DEXAMETHASONE
     Dates: end: 20131120
  3. METHOTREXATE [Suspect]
     Active Substance: METHOTREXATE
     Dates: end: 20131121
  4. ONCASPAR [Suspect]
     Active Substance: PEGASPARGASE
  5. VINCRISTINE SULFATE [Suspect]
     Active Substance: VINCRISTINE SULFATE
     Dates: end: 20131114

REACTIONS (6)
  - Back pain [None]
  - Burkitt^s lymphoma [None]
  - Leukaemia recurrent [None]
  - Hepatic mass [None]
  - Road traffic accident [None]
  - Bone disorder [None]

NARRATIVE: CASE EVENT DATE: 20210306
